FAERS Safety Report 7310548-8 (Version None)
Quarter: 2011Q1

REPORT INFORMATION
  Report Type: 
  Country: None (occurrence: None)
  Receive Date: 20110224
  Receipt Date: 20101222
  Transmission Date: 20110831
  Serious: No
  Sender: FDA-Public Use
  Company Number: US-BRISTOL-MYERS SQUIBB COMPANY-15457484

PATIENT
  Age: 44 Year
  Sex: Female
  Weight: 63 kg

DRUGS (4)
  1. METFORMIN HCL [Suspect]
     Indication: DIABETES MELLITUS
     Dosage: DOSE TAKEN FOR 6 MONTHS TO A YEAR,1 DF=2 500 MG TABS/DAY.
  2. LISINOPRIL [Concomitant]
  3. LAMOTRIGINE [Concomitant]
  4. VALTREX [Concomitant]

REACTIONS (1)
  - PREGNANCY [None]
